FAERS Safety Report 19139164 (Version 1)
Quarter: 2021Q2

REPORT INFORMATION
  Report Type: Spontaneous
  Country: FR (occurrence: FR)
  Receive Date: 20210415
  Receipt Date: 20210415
  Transmission Date: 20210717
  Serious: Yes (Hospitalization, Other)
  Sender: FDA-Public Use
  Company Number: FR-MYLANLABS-2021M1022035

PATIENT
  Age: 6 Decade
  Sex: Female

DRUGS (4)
  1. TRASTUZUMAB. [Suspect]
     Active Substance: TRASTUZUMAB
     Indication: TARGETED CANCER THERAPY
     Dosage: UNK UNK, CYCLE RECEIVED 7 CYCLES FOLLOWED BY MAINTENANCE; PHASE??
     Route: 065
  2. TRASTUZUMAB. [Suspect]
     Active Substance: TRASTUZUMAB
     Indication: BREAST CANCER
     Dosage: UNK UNK, CYCLE ALONG WITH FEC100 REGIMEN FOR OVER 1 YEAR
     Route: 065
  3. TRASTUZUMAB. [Suspect]
     Active Substance: TRASTUZUMAB
     Indication: BREAST CANCER METASTATIC
  4. EVEROLIMUS. [Suspect]
     Active Substance: EVEROLIMUS
     Indication: BREAST CANCER METASTATIC
     Dosage: UNK, CYCLE RECEIVED 7 CYCLES FOLLOWED BY MAINTENANCE??.
     Route: 065

REACTIONS (5)
  - Splenic lesion [Recovered/Resolved]
  - Rebound effect [Unknown]
  - Condition aggravated [Unknown]
  - Endometriosis [Recovered/Resolved]
  - Left ventricular dysfunction [Unknown]
